FAERS Safety Report 8196449-4 (Version None)
Quarter: 2012Q1

REPORT INFORMATION
  Report Type: 
  Country: None (occurrence: None)
  Receive Date: 20120307
  Receipt Date: 20120307
  Transmission Date: 20120608
  Serious: Yes (Hospitalization)
  Sender: FDA-Public Use
  Company Number: None

PATIENT
  Sex: Male
  Weight: 129.1 kg

DRUGS (2)
  1. BEVACIZUMAB GENETECH [Suspect]
     Indication: RENAL CELL CARCINOMA
     Dosage: 15 MG D 1 + 8 Q21 D IV
     Route: 042
     Dates: start: 20120117, end: 20120207
  2. VELCADE [Suspect]
     Indication: RENAL CELL CARCINOMA
     Dosage: 1.3 MG D1,4,8,11 Q21D IV
     Route: 042
     Dates: start: 20120117, end: 20120210

REACTIONS (1)
  - URINARY TRACT INFECTION [None]
